FAERS Safety Report 5281935-7 (Version None)
Quarter: 2007Q1

REPORT INFORMATION
  Report Type: 
  Country: None (occurrence: None)
  Receive Date: 20070326
  Receipt Date: 20070315
  Transmission Date: 20070707
  Serious: Yes (Hospitalization)
  Sender: FDA-Public Use
  Company Number: GXKR2007FR02614

PATIENT
  Age: 49 Year
  Sex: Male

DRUGS (16)
  1. AMOXICILLIN - CLAVULANIC ACID(NGX) (AMOXICILLIN,  CLAVULANTE) UNKNOWN [Suspect]
     Indication: ABSCESS LIMB
     Dosage: ORAL
     Route: 048
     Dates: start: 20070209, end: 20070211
  2. IMURAN [Suspect]
     Indication: ABSCESS LIMB
     Dosage: ORAL
     Route: 048
     Dates: start: 20070126, end: 20070211
  3. COLCHICINE (COLCHICINE) [Concomitant]
  4. DEPAKENE [Concomitant]
  5. ATHYMIL (MIANSERIN HYDROCHLORIDE) [Concomitant]
  6. ZOLOFT [Concomitant]
  7. IMOVANE (ZOPICLONE) [Concomitant]
  8. ACUPAN [Concomitant]
  9. SPASFON (PHLOROGLUCINOL, TRIMETHYLPHLOROGLUCINOL) [Concomitant]
  10. RENITEC/NET/ (ENALAPRIL) [Concomitant]
  11. NICARDIPINE HYDROCHLORIDE [Concomitant]
  12. KEPPRA [Concomitant]
  13. HYPERIUM (RILMENIDINE) [Concomitant]
  14. PLAVIX [Concomitant]
  15. BACTRIM [Concomitant]
  16. CALCIDOSE (CALCIUM CARBONATE) [Concomitant]

REACTIONS (5)
  - ALANINE AMINOTRANSFERASE INCREASED [None]
  - ASPARTATE AMINOTRANSFERASE INCREASED [None]
  - BLOOD ALKALINE PHOSPHATASE INCREASED [None]
  - GAMMA-GLUTAMYLTRANSFERASE INCREASED [None]
  - PYREXIA [None]
